FAERS Safety Report 13774674 (Version 1)
Quarter: 2017Q3

REPORT INFORMATION
  Report Type: Spontaneous
  Country: US (occurrence: US)
  Receive Date: 20170720
  Receipt Date: 20170720
  Transmission Date: 20171127
  Serious: No
  Sender: FDA-Public Use
  Company Number: None

PATIENT
  Sex: Male

DRUGS (1)
  1. SUTENT [Suspect]
     Active Substance: SUNITINIB MALATE
     Indication: NEOPLASM MALIGNANT
     Dosage: 1 CAPSULE DAILY FOR 4 WEEKS ON AND 2 WEEKS OFF BY MOUTH
     Route: 048
     Dates: start: 20170203

REACTIONS (1)
  - Full blood count decreased [None]
